FAERS Safety Report 8197831-1 (Version None)
Quarter: 2012Q1

REPORT INFORMATION
  Report Type: 
  Country: None (occurrence: None)
  Receive Date: 20120309
  Receipt Date: 20120224
  Transmission Date: 20120608
  Serious: Yes (Hospitalization)
  Sender: FDA-Public Use
  Company Number: IN-JNJFOC-20120206103

PATIENT
  Age: 50 Year
  Sex: Male

DRUGS (2)
  1. REMICADE [Suspect]
     Indication: RHEUMATOID ARTHRITIS
     Dosage: SECOND DOSE
     Route: 042
     Dates: start: 20120201, end: 20120201
  2. REMICADE [Suspect]
     Route: 042

REACTIONS (2)
  - PRURITUS GENERALISED [None]
  - SKIN DISCOLOURATION [None]
